FAERS Safety Report 24634536 (Version 5)
Quarter: 2025Q4

REPORT INFORMATION
  Report Type: Spontaneous
  Country: EU (occurrence: EU)
  Receive Date: 20241119
  Receipt Date: 20251127
  Transmission Date: 20260119
  Serious: Yes (Hospitalization, Other)
  Sender: AUROBINDO
  Company Number: EU-HIKMA PHARMACEUTICALS-ES-H14001-24-10250

PATIENT
  Age: 75 Year
  Sex: Male
  Weight: 105.3 kg

DRUGS (31)
  1. CARBOPLATIN [Suspect]
     Active Substance: CARBOPLATIN
     Indication: Non-small cell lung cancer
     Dosage: 629 MILLIGRAM (629 MILLIGRAM, 3W)
     Dates: start: 20241002, end: 20241002
  2. CARBOPLATIN [Suspect]
     Active Substance: CARBOPLATIN
     Dosage: 629 MILLIGRAM (629 MILLIGRAM, 3W)
     Dates: start: 20241204, end: 20241204
  3. CARBOPLATIN [Suspect]
     Active Substance: CARBOPLATIN
     Dosage: 629 MILLIGRAM (629 MILLIGRAM, 3W)
     Dates: start: 20241224, end: 20241224
  4. PEMETREXED [Suspect]
     Active Substance: PEMETREXED
     Indication: Non-small cell lung cancer
     Dosage: 500 MILLIGRAM/SQ. METER (500 MILLIGRAM/SQ. METER, 3W)
  5. PEMETREXED [Suspect]
     Active Substance: PEMETREXED
     Dosage: 500 MILLIGRAM/SQ. METER (500 MILLIGRAM/SQ. METER, 3W)
     Dates: start: 20241204, end: 20241204
  6. PEMETREXED [Suspect]
     Active Substance: PEMETREXED
     Dosage: 500 MILLIGRAM/SQ. METER (500 MILLIGRAM/SQ. METER, 3W)
     Dates: start: 20241224, end: 20241224
  7. VUDALIMAB [Suspect]
     Active Substance: VUDALIMAB
     Indication: Non-small cell lung cancer
     Dosage: 500 MILLIGRAM (500 MILLIGRAM, 3W)
     Dates: start: 20241002, end: 20241002
  8. VUDALIMAB [Suspect]
     Active Substance: VUDALIMAB
     Dosage: 500 MILLIGRAM (500 MILLIGRAM, 3W)
  9. VUDALIMAB [Suspect]
     Active Substance: VUDALIMAB
     Dosage: 78 MILLILITER
  10. VUDALIMAB [Suspect]
     Active Substance: VUDALIMAB
     Dosage: 500 MILLIGRAM, EVERY WEEK
     Dates: start: 20241204, end: 20241204
  11. VUDALIMAB [Suspect]
     Active Substance: VUDALIMAB
     Dosage: 500 MILLIGRAM, 3W
     Dates: start: 20241224, end: 20241224
  12. VUDALIMAB [Suspect]
     Active Substance: VUDALIMAB
     Dosage: 500 MILLIGRAM, 3W
     Dates: start: 20250122, end: 20250122
  13. VUDALIMAB [Suspect]
     Active Substance: VUDALIMAB
     Dosage: 500 MILLIGRAM, 3W
     Dates: start: 20250305, end: 20250305
  14. VUDALIMAB [Suspect]
     Active Substance: VUDALIMAB
     Dosage: 500 MILLIGRAM, 3W
     Dates: start: 20250212, end: 20250212
  15. HYDROCHLOROTHIAZIDE [Concomitant]
     Active Substance: HYDROCHLOROTHIAZIDE
     Indication: Product used for unknown indication
     Dosage: UNK
     Route: 065
  16. OLMESARTAN [Concomitant]
     Active Substance: OLMESARTAN
     Indication: Product used for unknown indication
     Dosage: UNK
     Route: 065
  17. AMLODIPINE [Concomitant]
     Active Substance: AMLODIPINE BESYLATE
     Indication: Hypertension
     Dosage: UNK
     Route: 065
  18. METFORMIN [Concomitant]
     Active Substance: METFORMIN HYDROCHLORIDE
     Indication: Type 2 diabetes mellitus
     Dosage: UNK
     Route: 065
  19. BISOPROLOL [Concomitant]
     Active Substance: BISOPROLOL
     Indication: Myocardial ischaemia
     Dosage: UNK
     Route: 065
  20. OMEPRAZOLE [Concomitant]
     Active Substance: OMEPRAZOLE
     Indication: Prophylaxis
     Dosage: UNK
     Route: 065
  21. FEBUXOSTAT [Concomitant]
     Active Substance: FEBUXOSTAT
     Indication: Osteitis deformans
     Dosage: UNK
     Route: 065
  22. ASPIRIN [Concomitant]
     Active Substance: ASPIRIN
     Indication: Myocardial ischaemia
     Dosage: UNK
     Route: 065
  23. DULAGLUTIDE [Concomitant]
     Active Substance: DULAGLUTIDE
     Indication: Type 2 diabetes mellitus
     Dosage: UNK
     Route: 065
  24. ATORVASTATIN [Concomitant]
     Active Substance: ATORVASTATIN
     Indication: Dyslipidaemia
     Dosage: UNK
     Route: 065
  25. DEXAMETHASONE [Concomitant]
     Active Substance: DEXAMETHASONE
     Indication: Product used for unknown indication
     Dosage: UNK
     Route: 065
  26. AKYNZEO (NETUPITANT\PALONOSETRON HYDROCHLORIDE) [Concomitant]
     Active Substance: NETUPITANT\PALONOSETRON HYDROCHLORIDE
     Indication: Product used for unknown indication
     Dosage: UNK
     Route: 065
     Dates: start: 20241002, end: 20241002
  27. FOLIC ACID [Concomitant]
     Active Substance: FOLIC ACID
     Indication: Prophylaxis
     Dosage: UNK
     Route: 065
  28. VITAMIN B12 [Concomitant]
     Active Substance: CYANOCOBALAMIN
     Indication: Prophylaxis
     Dosage: UNK
     Route: 065
  29. PIPERACILLIN [Concomitant]
     Active Substance: PIPERACILLIN
     Indication: Pyrexia
     Dosage: UNK
     Route: 065
  30. PIPERACILLIN SODIUM\TAZOBACTAM SODIUM [Concomitant]
     Active Substance: PIPERACILLIN SODIUM\TAZOBACTAM SODIUM
     Indication: Evidence based treatment
     Dosage: 4 GRAM, FOUR TIMES/DAY
     Route: 065
  31. LINEZOLID [Concomitant]
     Active Substance: LINEZOLID
     Indication: Product used for unknown indication
     Dosage: 600 MILLIGRAM

REACTIONS (15)
  - Chest X-ray abnormal [Unknown]
  - Ultrasound abdomen abnormal [Unknown]
  - Rash [Unknown]
  - C-reactive protein increased [Unknown]
  - Anaemia [Unknown]
  - Blood creatinine increased [Unknown]
  - Platelet count decreased [Unknown]
  - Pyrexia [Recovered/Resolved]
  - Angina pectoris [Recovered/Resolved]
  - Cellulitis [Not Recovered/Not Resolved]
  - Neutropenia [Unknown]
  - Influenza [Unknown]
  - Thrombocytopenia [Unknown]
  - Palmar erythema [Unknown]
  - Erythema [Unknown]

NARRATIVE: CASE EVENT DATE: 20241018
